FAERS Safety Report 9203917 (Version 1)
Quarter: 2013Q2

REPORT INFORMATION
  Report Type: Spontaneous
  Country: US (occurrence: US)
  Receive Date: 20130402
  Receipt Date: 20130402
  Transmission Date: 20140414
  Serious: Yes (Other)
  Sender: FDA-Public Use
  Company Number: US-SANOFI-AVENTIS-2013SA032794

PATIENT
  Age: 19 Year
  Sex: Female

DRUGS (2)
  1. LOVENOX [Suspect]
     Indication: THROMBOSIS
     Dosage: DRUG STARTED SINCE 1 YEAR
     Route: 051
     Dates: end: 201209
  2. LOVENOX [Suspect]
     Indication: THROMBOSIS
     Route: 051

REACTIONS (7)
  - Retroperitoneal haemorrhage [Recovered/Resolved]
  - Angiopathy [Recovered/Resolved]
  - Mobility decreased [Recovered/Resolved]
  - Pain in extremity [Recovered/Resolved]
  - Deep vein thrombosis [Recovered/Resolved]
  - Pulmonary embolism [Recovered/Resolved]
  - Injection site bruising [Unknown]
